FAERS Safety Report 11175871 (Version 1)
Quarter: 2015Q2

REPORT INFORMATION
  Report Type: Other
  Country: CA (occurrence: CA)
  Receive Date: 20150609
  Receipt Date: 20150609
  Transmission Date: 20150821
  Serious: Yes (Hospitalization, Other)
  Sender: FDA-Public Use
  Company Number: CA-APOTEX-2015AP009696

PATIENT
  Sex: Female
  Weight: 44 kg

DRUGS (2)
  1. RATIO-LENOLTEC NO 3 [Concomitant]
  2. KETOROLAC [Suspect]
     Active Substance: KETOROLAC\KETOROLAC TROMETHAMINE
     Indication: PERIARTHRITIS
     Dosage: 10.0 MG, QID
     Route: 048

REACTIONS (5)
  - Colitis microscopic [Recovered/Resolved]
  - Diarrhoea [Recovered/Resolved]
  - Weight decreased [Recovered/Resolved]
  - Decreased appetite [Recovered/Resolved]
  - Fatigue [Recovered/Resolved]
